FAERS Safety Report 17671637 (Version 1)
Quarter: 2020Q2

REPORT INFORMATION
  Report Type: Spontaneous
  Country: ES (occurrence: ES)
  Receive Date: 20200415
  Receipt Date: 20200415
  Transmission Date: 20200713
  Serious: Yes (Death, Hospitalization)
  Sender: FDA-Public Use
  Company Number: ES-MYLANLABS-2020M1038168

PATIENT
  Age: 45 Year
  Sex: Male

DRUGS (4)
  1. TENOFOVIR DISOPROXIL [Suspect]
     Active Substance: TENOFOVIR DISOPROXIL
     Indication: HEPATITIS B SURFACE ANTIBODY POSITIVE
     Dosage: UNK
     Route: 048
     Dates: start: 20200207, end: 20200228
  2. BLEOMYCIN SULFATE [Suspect]
     Active Substance: BLEOMYCIN SULFATE
     Indication: SEMINOMA
     Dosage: UNK
     Route: 042
     Dates: start: 20200220, end: 20200222
  3. METAMIZOL                          /06276701/ [Suspect]
     Active Substance: METAMIZOLE
     Indication: PRODUCT USED FOR UNKNOWN INDICATION
     Dosage: 575 MILLIGRAM, Q8H
     Route: 048
     Dates: start: 20200201, end: 20200228
  4. DEXAMETASONA                       /00016001/ [Suspect]
     Active Substance: DEXAMETHASONE
     Indication: PRODUCT USED FOR UNKNOWN INDICATION
     Dosage: UNK
     Route: 048
     Dates: start: 20200212, end: 20200229

REACTIONS (2)
  - Pancytopenia [Fatal]
  - Septic shock [Fatal]

NARRATIVE: CASE EVENT DATE: 20200224
